FAERS Safety Report 11746510 (Version 1)
Quarter: 2015Q4

REPORT INFORMATION
  Report Type: Spontaneous
  Country: US (occurrence: None)
  Receive Date: 20151116
  Receipt Date: 20151116
  Transmission Date: 20160304
  Serious: No
  Sender: FDA-Public Use
  Company Number: None

PATIENT
  Age: 54 Year
  Sex: Female
  Weight: 55.79 kg

DRUGS (6)
  1. RISPERDAL [Suspect]
     Active Substance: RISPERIDONE
     Route: 048
     Dates: start: 20151016, end: 20151019
  2. KLONOPIN [Concomitant]
     Active Substance: CLONAZEPAM
  3. TRILEPTAL [Concomitant]
     Active Substance: OXCARBAZEPINE
  4. TRIHEXYPHENIDYL [Concomitant]
     Active Substance: TRIHEXYPHENIDYL
  5. ZYPREXA [Concomitant]
     Active Substance: OLANZAPINE
  6. NORVASC [Concomitant]
     Active Substance: AMLODIPINE BESYLATE

REACTIONS (2)
  - Gait disturbance [None]
  - Sedation [None]

NARRATIVE: CASE EVENT DATE: 20151017
